FAERS Safety Report 8412941-9 (Version None)
Quarter: 2012Q2

REPORT INFORMATION
  Report Type: 
  Country: None (occurrence: None)
  Receive Date: 20120605
  Receipt Date: 20120525
  Transmission Date: 20120825
  Serious: No
  Sender: FDA-Public Use
  Company Number: US-AMGEN-USASP2012033096

PATIENT
  Age: 67 Year
  Sex: Male

DRUGS (2)
  1. ENBREL [Suspect]
     Indication: PSORIATIC ARTHROPATHY
     Dosage: 50 MG, 2 TIMES/WK
     Dates: start: 20120501
  2. ENBREL [Suspect]
     Indication: PSORIASIS

REACTIONS (7)
  - COUGH [None]
  - FATIGUE [None]
  - INJECTION SITE MASS [None]
  - SOMNOLENCE [None]
  - INJECTION SITE ERYTHEMA [None]
  - DRUG INEFFECTIVE [None]
  - PARANASAL SINUS HYPERSECRETION [None]
